FAERS Safety Report 6672019-1 (Version None)
Quarter: 2010Q2

REPORT INFORMATION
  Report Type: 
  Country: None (occurrence: None)
  Receive Date: 20100406
  Receipt Date: 20100325
  Transmission Date: 20101027
  Serious: Yes (Other)
  Sender: FDA-Public Use
  Company Number: CV20100149

PATIENT
  Age: 55 Year
  Sex: Male

DRUGS (3)
  1. ISOTONIC SODIUM CHLORIDE  0.9% [Suspect]
     Indication: SEPSIS
     Dosage: INTRAVENOUS DRIP
     Route: 041
     Dates: start: 20091202, end: 20091205
  2. AMIKLIN (AMIKACIN) (AMIKACIN) [Concomitant]
  3. AUGMENTIN '125' [Concomitant]

REACTIONS (4)
  - BLOOD CREATININE INCREASED [None]
  - CONDITION AGGRAVATED [None]
  - HAEMODIALYSIS [None]
  - RENAL IMPAIRMENT [None]
